FAERS Safety Report 5417528-8 (Version None)
Quarter: 2007Q3

REPORT INFORMATION
  Report Type: 
  Country: None (occurrence: None)
  Receive Date: 20070718
  Receipt Date: 20070503
  Transmission Date: 20080115
  Serious: Yes (Death, Hospitalization, Other)
  Sender: FDA-Public Use
  Company Number: 2007035952

PATIENT
  Age: 74 Year
  Sex: Female
  Weight: 72.6 kg

DRUGS (1)
  1. CELEBREX [Suspect]
     Indication: ARTHRITIS
     Dosage: (200 MG, 2 TO 3 TIMES PER DAY)
     Dates: start: 20040401, end: 20040706

REACTIONS (1)
  - CEREBROVASCULAR ACCIDENT [None]
